FAERS Safety Report 6240782-X (Version None)
Quarter: 2009Q2

REPORT INFORMATION
  Report Type: 
  Country: None (occurrence: None)
  Receive Date: 20090619
  Receipt Date: 20090619
  Transmission Date: 20091009
  Serious: Yes (Death, Hospitalization)
  Sender: FDA-Public Use
  Company Number: None

PATIENT
  Sex: Female
  Weight: 83.7 kg

DRUGS (2)
  1. CYTARABINE [Suspect]
     Dosage: 1344 MG
     Dates: end: 20090528
  2. DAUNORUBICIN HCL [Suspect]
     Dosage: 345 MG
     Dates: end: 20090524

REACTIONS (10)
  - BACTERAEMIA [None]
  - BRAIN ABSCESS [None]
  - DEPRESSED LEVEL OF CONSCIOUSNESS [None]
  - DISEASE PROGRESSION [None]
  - FEELING ABNORMAL [None]
  - GENERAL PHYSICAL HEALTH DETERIORATION [None]
  - HYPERNATRAEMIA [None]
  - MYDRIASIS [None]
  - NUCHAL RIGIDITY [None]
  - UNRESPONSIVE TO STIMULI [None]
